FAERS Safety Report 22004896 (Version 3)
Quarter: 2023Q2

REPORT INFORMATION
  Report Type: Spontaneous
  Country: US (occurrence: US)
  Receive Date: 20230217
  Receipt Date: 20230407
  Transmission Date: 20230721
  Serious: No
  Sender: FDA-Public Use
  Company Number: US-PFIZER INC-202300060756

PATIENT
  Age: 69 Year
  Sex: Female
  Weight: 77.11 kg

DRUGS (1)
  1. GENOTROPIN [Suspect]
     Active Substance: SOMATROPIN
     Indication: Pituitary tumour benign
     Dosage: 0.4 MG, 1X/DAY

REACTIONS (3)
  - Product dose omission issue [Unknown]
  - Circumstance or information capable of leading to device use error [Unknown]
  - Off label use [Unknown]

NARRATIVE: CASE EVENT DATE: 20230130
